FAERS Safety Report 17140113 (Version 5)
Quarter: 2023Q4

REPORT INFORMATION
  Report Type: Report from Study
  Country: CA (occurrence: CA)
  Receive Date: 20191211
  Receipt Date: 20231207
  Transmission Date: 20240109
  Serious: Yes (Hospitalization, Other)
  Sender: FDA-Public Use
  Company Number: CA-TAKEDA-2019TUS068977

PATIENT
  Age: 12 Year
  Sex: Female

DRUGS (3)
  1. VEDOLIZUMAB [Suspect]
     Active Substance: VEDOLIZUMAB
     Indication: Crohn^s disease
     Dosage: 300 MILLIGRAM
     Route: 042
     Dates: start: 20190716
  2. VEDOLIZUMAB [Suspect]
     Active Substance: VEDOLIZUMAB
     Dosage: 300 MILLIGRAM, Q4WEEKS
     Route: 042
     Dates: start: 20190924
  3. HUMIRA [Concomitant]
     Active Substance: ADALIMUMAB
     Dosage: UNK, Q2WEEKS
     Route: 050
     Dates: start: 2019

REACTIONS (4)
  - Crohn^s disease [Unknown]
  - Constipation [Unknown]
  - Off label use [Unknown]
  - Anal fissure [Recovering/Resolving]

NARRATIVE: CASE EVENT DATE: 20190716
